FAERS Safety Report 5846686-6 (Version None)
Quarter: 2008Q3

REPORT INFORMATION
  Report Type: 
  Country: None (occurrence: None)
  Receive Date: 20080815
  Receipt Date: 20070827
  Transmission Date: 20090109
  Serious: No
  Sender: FDA-Public Use
  Company Number: US-BAYER-US-2007-032142

PATIENT
  Age: 29 Year
  Sex: Female
  Weight: 120 kg

DRUGS (5)
  1. LEVLITE [Suspect]
     Indication: MENSTRUATION IRREGULAR
     Route: 048
     Dates: start: 20070101
  2. LISINOPRIL [Concomitant]
  3. HYDROCHLOROTHIAZIDE [Concomitant]
  4. FLUOXETINE [Concomitant]
     Route: 048
  5. NEXIUM [Concomitant]

REACTIONS (1)
  - MENOMETRORRHAGIA [None]
